FAERS Safety Report 18105920 (Version 1)
Quarter: 2020Q3

REPORT INFORMATION
  Report Type: Report from Study
  Country: ZA (occurrence: ZA)
  Receive Date: 20200803
  Receipt Date: 20200803
  Transmission Date: 20201103
  Serious: Yes (Death)
  Sender: FDA-Public Use
  Company Number: ZA-ASTRAZENECA-2020SE95836

PATIENT
  Age: 95 Year
  Sex: Female

DRUGS (5)
  1. DONECEPT [Concomitant]
     Active Substance: DONEPEZIL HYDROCHLORIDE
     Dosage: 5.0MG UNKNOWN
  2. TRUSTAN [Suspect]
     Active Substance: ESOMEPRAZOLE
     Indication: ULCER
     Dosage: 20.0MG UNKNOWN
     Route: 048
  3. ECOTRIN [Concomitant]
     Active Substance: ASPIRIN
     Dosage: 81.0MG UNKNOWN
  4. OXPOLA [Concomitant]
     Active Substance: PRAMIPEXOLE DIHYDROCHLORIDE
     Dosage: 0.25MG UNKNOWN
  5. GLUGOPHAGE XR [Concomitant]
     Dosage: 500.0MG UNKNOWN

REACTIONS (1)
  - Death [Fatal]

NARRATIVE: CASE EVENT DATE: 20200701
